FAERS Safety Report 17028133 (Version 10)
Quarter: 2022Q4

REPORT INFORMATION
  Report Type: Spontaneous
  Country: CZ (occurrence: CZ)
  Receive Date: 20191113
  Receipt Date: 20221011
  Transmission Date: 20230113
  Serious: Yes (Hospitalization, Other)
  Sender: FDA-Public Use
  Company Number: CZ-MYLANLABS-2019M1108209

PATIENT
  Age: 67 Year
  Sex: Female
  Weight: 78 kg

DRUGS (23)
  1. ZOLPIDEM [Suspect]
     Active Substance: ZOLPIDEM TARTRATE
     Indication: Middle insomnia
     Dosage: 10 MILLIGRAM, QD (AT NIGHT CORRECTED HER SLEEP WELL FOR ABOUT A YEAR)
     Route: 048
  2. ZOLPIDEM [Suspect]
     Active Substance: ZOLPIDEM TARTRATE
     Indication: Insomnia
     Dosage: 20 MG QD (INCREASING DOSE TO 20 MG QD AGAIN PROVIDED CORRECTION FOR SLEEP FOR ANOTHER YEAR)
     Route: 048
  3. ZOLPIDEM [Suspect]
     Active Substance: ZOLPIDEM TARTRATE
     Dosage: 30 MILLIGRAM QD (3RD YEAR:IN LAST YEAR SHE INCREASED DOSE TO THREE TABLETS A NIGHT FOR INSOMNIA)
     Route: 065
  4. ZOLPIDEM [Suspect]
     Active Substance: ZOLPIDEM TARTRATE
     Dosage: 30 MG FOR INSOMNIA (3 TAB AT NIGHT) AND HALF THE TAB FOR ANXIETY DURING DAY, IF NEEDED
     Route: 048
  5. ZOLPIDEM [Suspect]
     Active Substance: ZOLPIDEM TARTRATE
     Dosage: 35 MILLIGRAM, QD
     Route: 048
  6. ZOLPIDEM [Suspect]
     Active Substance: ZOLPIDEM TARTRATE
     Dosage: 3.5 DOSAGE FORM, QD (THREE TABLETS A NIGHT + HALF A ZOLPIDEM TABLET)
     Route: 065
  7. ZOLPIDEM [Suspect]
     Active Substance: ZOLPIDEM TARTRATE
     Dosage: 5 MILLIGRAM, SHE WAS PARTIALLY ABLE TO CONTROL HER ANXIETY BY TAKING
     Route: 065
  8. ZOLPIDEM [Suspect]
     Active Substance: ZOLPIDEM TARTRATE
     Dosage: UP TO 30MG
     Route: 065
  9. TRAZODONE [Suspect]
     Active Substance: TRAZODONE HYDROCHLORIDE
     Indication: Depression
     Dosage: 300 MILLIGRAM, QD
     Route: 065
  10. TRAZODONE [Suspect]
     Active Substance: TRAZODONE HYDROCHLORIDE
     Indication: Hyposomnia
  11. TRAZODONE [Suspect]
     Active Substance: TRAZODONE HYDROCHLORIDE
     Indication: Anxiety
  12. METFORMIN [Concomitant]
     Active Substance: METFORMIN HYDROCHLORIDE
     Indication: Diabetes mellitus
     Dosage: SHE MANAGED TO TAKE HER DIABETIC DIET AND MEDICATION REGULARLY
     Route: 065
  13. METFORMIN [Concomitant]
     Active Substance: METFORMIN HYDROCHLORIDE
     Indication: Type 2 diabetes mellitus
  14. GUAIFENESIN;PARACETAMOL [Concomitant]
     Indication: Muscle relaxant therapy
     Dosage: UNK
     Route: 065
  15. GUAIFENESIN;PARACETAMOL [Concomitant]
     Indication: Productive cough
     Dosage: 1-2 TBL
     Route: 065
  16. GUAIFENESIN;PARACETAMOL [Concomitant]
     Indication: Anxiolytic therapy
  17. GUAIFENESIN;PARACETAMOL [Concomitant]
     Indication: Back pain
  18. GUAIFENESIN;PARACETAMOL [Concomitant]
     Indication: Pain
  19. GUAIFENESIN;PARACETAMOL [Concomitant]
     Indication: Analgesic therapy
  20. KOFFEIN [Concomitant]
     Indication: Central nervous system stimulation
     Dosage: UNK
     Route: 065
  21. KOFFEIN [Concomitant]
     Indication: Back pain
  22. INSULIN NOS [Concomitant]
     Active Substance: INSULIN NOS
     Indication: Type 2 diabetes mellitus
     Dosage: SHE MANAGED TO TAKE HER DIABETIC DIET AND MEDICATION REGULARLY
     Route: 065
  23. INSULIN NOS [Concomitant]
     Active Substance: INSULIN NOS
     Indication: Diabetes mellitus

REACTIONS (23)
  - Decreased appetite [Unknown]
  - Bulimia nervosa [Unknown]
  - Abulia [Unknown]
  - Anhedonia [Unknown]
  - Psychomotor retardation [Recovered/Resolved]
  - Anxiety [Unknown]
  - Depressed mood [Recovering/Resolving]
  - Suicidal ideation [Recovered/Resolved]
  - Terminal insomnia [Recovered/Resolved]
  - Major depression [Recovered/Resolved]
  - Therapeutic product effect incomplete [Unknown]
  - Intentional product misuse [Recovered/Resolved]
  - Overdose [Unknown]
  - Drug tolerance [Unknown]
  - Drug ineffective [Recovered/Resolved]
  - Mental disorder [Recovered/Resolved]
  - Fatigue [Unknown]
  - Psychomotor skills impaired [Unknown]
  - Therapeutic product effect decreased [Recovered/Resolved]
  - Drug abuse [Unknown]
  - Insomnia [Unknown]
  - Intentional product use issue [Unknown]
  - Off label use [Unknown]
